FAERS Safety Report 9007891 (Version 2)
Quarter: 2014Q1

REPORT INFORMATION
  Report Type: Spontaneous
  Country: US (occurrence: US)
  Receive Date: 20130111
  Receipt Date: 20140113
  Transmission Date: 20141002
  Serious: Yes (Hospitalization, Other)
  Sender: FDA-Public Use
  Company Number: US-BAYER-2013-003368

PATIENT
  Age: 20 Year
  Sex: Female

DRUGS (3)
  1. YAZ [Suspect]
  2. DIPHENOXYLATE/ATROPINE [DIPHENOXYLATE HYDROCHLORIDE] [Concomitant]
     Dosage: UNK
     Route: 048
     Dates: start: 20100311
  3. ONDANSETRON HYDROCHLORIDE [Concomitant]
     Dosage: 4 MG, UNK
     Dates: start: 20100311

REACTIONS (5)
  - Cholecystectomy [None]
  - Cholecystitis chronic [None]
  - Injury [None]
  - Pain [None]
  - Pain [None]
